FAERS Safety Report 25470068 (Version 1)
Quarter: 2025Q2

REPORT INFORMATION
  Report Type: Spontaneous
  Country: JP (occurrence: JP)
  Receive Date: 20250623
  Receipt Date: 20250623
  Transmission Date: 20250716
  Serious: Yes (Hospitalization, Other)
  Sender: MERCK SHARP & DOHME LLC
  Company Number: JP-009507513-2298349

PATIENT
  Age: 9 Decade
  Sex: Male

DRUGS (1)
  1. KEYTRUDA [Suspect]
     Active Substance: PEMBROLIZUMAB
     Indication: Glottis carcinoma

REACTIONS (7)
  - Respiratory failure [Unknown]
  - Malignant neoplasm progression [Unknown]
  - Hypercapnia [Unknown]
  - Laryngeal necrosis [Unknown]
  - Pneumonia aspiration [Unknown]
  - Bradycardia [Unknown]
  - Renal impairment [Unknown]
